FAERS Safety Report 5061569-X (Version None)
Quarter: 2006Q3

REPORT INFORMATION
  Report Type: 
  Country: None (occurrence: None)
  Receive Date: 20060721
  Receipt Date: 20060703
  Transmission Date: 20061208
  Serious: Yes (Other)
  Sender: FDA-Public Use
  Company Number: 163-21880-06060114

PATIENT
  Age: 81 Year
  Sex: Male

DRUGS (1)
  1. REVLIMID [Suspect]
     Indication: MYELODYSPLASTIC SYNDROME
     Dosage: 5 MG, QHS, ORAL
     Route: 048
     Dates: start: 20060501

REACTIONS (5)
  - CHEILITIS [None]
  - DEAFNESS [None]
  - EYE DISORDER [None]
  - JOINT SWELLING [None]
  - SKIN LESION [None]
